FAERS Safety Report 6115855-2 (Version None)
Quarter: 2009Q1

REPORT INFORMATION
  Report Type: 
  Country: None (occurrence: None)
  Receive Date: 20090311
  Receipt Date: 20090226
  Transmission Date: 20090719
  Serious: No
  Sender: FDA-Public Use
  Company Number: US025553

PATIENT
  Age: 50 Year
  Sex: Male
  Weight: 90.7194 kg

DRUGS (4)
  1. FENTORA [Suspect]
     Indication: VERTEBRAL INJURY
     Dosage: 200 UG BUCCAL
     Route: 002
     Dates: start: 20060701
  2. FENTORA [Suspect]
     Indication: VERTEBRAL INJURY
     Dosage: 600 UG BUCCAL
     Route: 002
  3. FENTORA [Suspect]
     Indication: VERTEBRAL INJURY
     Dosage: 400 UG BUCCAL
     Route: 002
  4. OXYCONTIN [Concomitant]

REACTIONS (2)
  - DRUG EFFECT DECREASED [None]
  - DRUG PRESCRIBING ERROR [None]
